FAERS Safety Report 7759109-7 (Version None)
Quarter: 2011Q3

REPORT INFORMATION
  Report Type: 
  Country: None (occurrence: None)
  Receive Date: 20110919
  Receipt Date: 20110913
  Transmission Date: 20111222
  Serious: Yes (Other)
  Sender: FDA-Public Use
  Company Number: PHHY2011CA81868

PATIENT
  Sex: Male

DRUGS (2)
  1. ZOLEDRONOC ACID [Suspect]
     Indication: OSTEOPOROSIS
     Dosage: UNK UKN, UNK
     Route: 042
     Dates: start: 20110818
  2. ADVIL LIQUI-GELS [Concomitant]
     Dosage: UNK UKN, UNK

REACTIONS (6)
  - CHILLS [None]
  - PYREXIA [None]
  - SPEECH DISORDER [None]
  - TREMOR [None]
  - ARTHRALGIA [None]
  - OEDEMA PERIPHERAL [None]
